FAERS Safety Report 9714054 (Version 2)
Quarter: 2013Q4

REPORT INFORMATION
  Report Type: Spontaneous
  Country: US (occurrence: US)
  Receive Date: 20131126
  Receipt Date: 20131126
  Transmission Date: 20140711
  Serious: No
  Sender: FDA-Public Use
  Company Number: US-GILEAD-2008-0018563

PATIENT
  Age: 42 Year
  Sex: Female

DRUGS (1)
  1. LETAIRIS [Suspect]
     Route: 048
     Dates: start: 20080815

REACTIONS (2)
  - Pulmonary arterial pressure increased [None]
  - Drug ineffective [None]
